FAERS Safety Report 11819928 (Version 1)
Quarter: 2015Q4

REPORT INFORMATION
  Report Type: Spontaneous
  Country: US (occurrence: None)
  Receive Date: 20151209
  Receipt Date: 20151209
  Transmission Date: 20160305
  Serious: Yes (Hospitalization)
  Sender: FDA-Public Use
  Company Number: None

PATIENT
  Age: 52 Year
  Sex: Male
  Weight: 81.64 kg

DRUGS (5)
  1. HARVONI [Suspect]
     Active Substance: LEDIPASVIR\SOFOSBUVIR
     Indication: HEPATITIS C
     Dosage: 90-400 MG
     Route: 048
     Dates: start: 20150618
  2. MILK THISTLE [Concomitant]
     Active Substance: MILK THISTLE
  3. IBUPROFEN  (ADVIL, MOTRIN) [Concomitant]
  4. CYCLOBENZAPRINE (FLEXERIL) [Concomitant]
  5. NAPROXEN SODIUM (ANAPROX) [Concomitant]

REACTIONS (5)
  - Tachycardia [None]
  - Lung disorder [None]
  - Diarrhoea [None]
  - No therapeutic response [None]
  - Chest pain [None]

NARRATIVE: CASE EVENT DATE: 20151004
